FAERS Safety Report 5311470-9 (Version None)
Quarter: 2007Q1

REPORT INFORMATION
  Report Type: 
  Country: None (occurrence: None)
  Receive Date: 20070201
  Receipt Date: 20061127
  Transmission Date: 20070707
  Serious: No
  Sender: FDA-Public Use
  Company Number: 259252

PATIENT
  Age: 58 Year
  Sex: Female

DRUGS (10)
  1. LEVEMIR [Suspect]
     Indication: INSULIN-REQUIRING TYPE II DIABETES MELLITUS
     Dosage: 30 IU, QD, SUBCUTANEOUS
     Route: 058
     Dates: start: 20060915
  2. METFORMIN HCL [Concomitant]
  3. TRICOR [Concomitant]
  4. LESCOL XL [Concomitant]
  5. ALLOPURINOL [Concomitant]
  6. ENALAPRIL MALEATE [Concomitant]
  7. AMARYL [Concomitant]
  8. COREG [Concomitant]
  9. CLARITIN [Concomitant]
  10. PLAVIX [Concomitant]

REACTIONS (2)
  - NAUSEA [None]
  - VOMITING [None]
